FAERS Safety Report 13084990 (Version 1)
Quarter: 2017Q1

REPORT INFORMATION
  Report Type: Spontaneous
  Country: JP (occurrence: JP)
  Receive Date: 20170104
  Receipt Date: 20170104
  Transmission Date: 20170428
  Serious: Yes (Other)
  Sender: FDA-Public Use
  Company Number: JP-BRACCO-010839

PATIENT
  Sex: Male

DRUGS (2)
  1. PROHANCE [Suspect]
     Active Substance: GADOTERIDOL
     Indication: NUCLEAR MAGNETIC RESONANCE IMAGING
     Route: 042
  2. MEPTIN [Concomitant]
     Active Substance: PROCATEROL HYDROCHLORIDE

REACTIONS (1)
  - Anaphylactic shock [Recovered/Resolved]
